FAERS Safety Report 11835362 (Version 1)
Quarter: 2015Q4

REPORT INFORMATION
  Report Type: Spontaneous
  Country: US (occurrence: None)
  Receive Date: 20151214
  Receipt Date: 20151214
  Transmission Date: 20160305
  Serious: Yes (Hospitalization)
  Sender: FDA-Public Use
  Company Number: None

PATIENT
  Age: 44 Year
  Sex: Male
  Weight: 90.72 kg

DRUGS (6)
  1. TESTOSTERONE CYPIONATE. [Concomitant]
     Active Substance: TESTOSTERONE CYPIONATE
  2. CEFAZOLIN [Suspect]
     Active Substance: CEFAZOLIN
     Indication: POSTOPERATIVE CARE
     Route: 042
     Dates: start: 20151124, end: 20151124
  3. CPAP [Concomitant]
     Active Substance: DEVICE
  4. VALSARTAN HCTZ [Concomitant]
     Active Substance: HYDROCHLOROTHIAZIDE\VALSARTAN
  5. CEFAZOLIN [Suspect]
     Active Substance: CEFAZOLIN
     Indication: ANTIBIOTIC THERAPY
     Route: 042
     Dates: start: 20151124, end: 20151124
  6. WELLBUTRIN [Concomitant]
     Active Substance: BUPROPION HYDROCHLORIDE

REACTIONS (3)
  - Dyspnoea [None]
  - Speech disorder [None]
  - Peripheral swelling [None]

NARRATIVE: CASE EVENT DATE: 20151124
